FAERS Safety Report 4928663-2 (Version None)
Quarter: 2006Q1

REPORT INFORMATION
  Report Type: 
  Country: None (occurrence: None)
  Receive Date: 20060227
  Receipt Date: 20060227
  Transmission Date: 20060701
  Serious: Yes (Hospitalization)
  Sender: FDA-Public Use
  Company Number: None

PATIENT
  Age: 70 Year
  Sex: Female
  Weight: 107.1 kg

DRUGS (6)
  1. KETEK [Suspect]
     Indication: PNEUMONIA
     Dosage: PO
     Route: 048
     Dates: start: 20051229, end: 20051231
  2. PREVACID [Concomitant]
  3. LEVOTHYROXINE (SYNTHROID) [Concomitant]
  4. ASPIRIN [Concomitant]
  5. XANAX [Concomitant]
  6. LOSARTAN/HCTZ (HYZAAR) [Concomitant]

REACTIONS (2)
  - ARRHYTHMIA [None]
  - PALPITATIONS [None]
